FAERS Safety Report 4669716-6 (Version None)
Quarter: 2005Q2

REPORT INFORMATION
  Report Type: 
  Country: None (occurrence: None)
  Receive Date: 20050520
  Receipt Date: 20041221
  Transmission Date: 20051028
  Serious: Yes (Other)
  Sender: FDA-Public Use
  Company Number: 04-12-1790

PATIENT

DRUGS (2)
  1. PROBENECID W/COLCHICINE - IPI UNKNOWN [Suspect]
     Indication: GOUT
  2. FLUINDIONE ORALS [Suspect]
     Indication: ANTICOAGULANT THERAPY

REACTIONS (3)
  - GOUT [None]
  - HAEMORRHOIDAL HAEMORRHAGE [None]
  - INTERNATIONAL NORMALISED RATIO INCREASED [None]
